FAERS Safety Report 9759664 (Version 2)
Quarter: 2015Q3

REPORT INFORMATION
  Report Type: Spontaneous
  Country: US (occurrence: US)
  Receive Date: 20131216
  Receipt Date: 20150806
  Transmission Date: 20151125
  Serious: No
  Sender: FDA-Public Use
  Company Number: US-GILEAD-2010-0028605

PATIENT
  Age: 77 Year
  Sex: Female
  Weight: 61.23 kg

DRUGS (17)
  1. DILUENT EPOPROSTENOL [Concomitant]
  2. CENTRUM SILVER [Concomitant]
     Active Substance: VITAMINS
  3. FUROSEMIDE. [Concomitant]
     Active Substance: FUROSEMIDE
  4. VITAMIN C [Concomitant]
     Active Substance: ASCORBIC ACID
  5. CALCIUM [Concomitant]
     Active Substance: CALCIUM
  6. OXYGEN. [Concomitant]
     Active Substance: OXYGEN
  7. WARFARIN SODIUM. [Concomitant]
     Active Substance: WARFARIN SODIUM
  8. POTASSIUM CHLORIDE. [Concomitant]
     Active Substance: POTASSIUM CHLORIDE
  9. OMEPRAZOLE. [Concomitant]
     Active Substance: OMEPRAZOLE
  10. BUPROPION SR [Concomitant]
     Active Substance: BUPROPION
  11. LETAIRIS [Suspect]
     Active Substance: AMBRISENTAN
     Indication: PULMONARY ARTERIAL HYPERTENSION
     Route: 048
     Dates: start: 20091006
  12. TYLENOL ER [Concomitant]
     Active Substance: ACETAMINOPHEN
  13. REMODULIN [Concomitant]
     Active Substance: TREPROSTINIL
  14. SILDEFANIL [Concomitant]
  15. SOLIUM CHLORIDE 0.9% [Concomitant]
  16. VIAGRA [Concomitant]
     Active Substance: SILDENAFIL CITRATE
  17. SUPER B COMPLEX [Concomitant]
     Active Substance: CYANOCOBALAMIN\DEXPANTHENOL\NIACINAMIDE\PYRIDOXINE HYDROCHLORIDE\RIBOFLAVIN 5^-PHOSPHATE SODIUM\THIAMINE HYDROCHLORIDE\VITAMIN B COMPLEX

REACTIONS (1)
  - Abdominal distension [Unknown]
